FAERS Safety Report 5297576-1 (Version None)
Quarter: 2007Q2

REPORT INFORMATION
  Report Type: 
  Country: None (occurrence: None)
  Receive Date: 20070416
  Receipt Date: 20070403
  Transmission Date: 20071010
  Serious: Yes (Hospitalization, Other)
  Sender: FDA-Public Use
  Company Number: PHEH2007US03222

PATIENT
  Age: 70 Year
  Sex: Female

DRUGS (18)
  1. AREDIA [Suspect]
     Indication: OSTEOPOROSIS
     Dosage: 45MG QMOS
     Route: 042
     Dates: start: 20050519, end: 20070301
  2. PREDNISONE TAB [Concomitant]
     Dosage: 60MG Q2DAYS
     Dates: start: 20070322
  3. PREDNISONE TAB [Concomitant]
     Dosage: 10MG Q2DAYS
     Dates: start: 20070321
  4. ATENOLOL [Concomitant]
     Dosage: 25 MG, BID
  5. LISINOPRIL [Concomitant]
     Dosage: 20 MG, BID
  6. NORVASC [Concomitant]
     Dosage: 2.5 MG, BID
  7. ASPIRIN [Concomitant]
  8. MAGNESIUM OXIDE [Concomitant]
     Dosage: 400 MG, BID
  9. LASIX [Concomitant]
  10. CATAPRES [Concomitant]
     Dosage: 0.2 MG, UNK
  11. PRILOSEC [Concomitant]
  12. OXYCONTIN [Concomitant]
  13. VICODIN [Concomitant]
  14. PROTONIX [Concomitant]
     Dosage: 40 MG, QD
  15. DEPAKOTE [Concomitant]
     Dosage: 250 MG, BID
  16. TYLENOL [Concomitant]
  17. ATORVASTATIN CALCIUM [Concomitant]
     Dosage: 10 MG, QD
  18. AMITRIPTYLINE HCL [Concomitant]
     Dosage: 10 MG, QHS

REACTIONS (33)
  - ACTIVATED PARTIAL THROMBOPLASTIN TIME PROLONGED [None]
  - ALBUMIN GLOBULIN RATIO DECREASED [None]
  - ANOREXIA [None]
  - BIOPSY KIDNEY ABNORMAL [None]
  - BLOOD ALBUMIN DECREASED [None]
  - BLOOD CALCIUM DECREASED [None]
  - BLOOD CREATININE INCREASED [None]
  - BLOOD GLUCOSE INCREASED [None]
  - BLOOD UREA INCREASED [None]
  - CACHEXIA [None]
  - CONSTIPATION [None]
  - DIALYSIS [None]
  - DIZZINESS POSTURAL [None]
  - DRY MOUTH [None]
  - DYSGEUSIA [None]
  - FATIGUE [None]
  - GLOBULINS DECREASED [None]
  - GLOMERULONEPHRITIS [None]
  - HYPERTENSION [None]
  - IRON BINDING CAPACITY TOTAL DECREASED [None]
  - LABORATORY TEST ABNORMAL [None]
  - NAUSEA [None]
  - NEPHROTIC SYNDROME [None]
  - OEDEMA PERIPHERAL [None]
  - PLATELET COUNT DECREASED [None]
  - PROTEIN TOTAL DECREASED [None]
  - PROTHROMBIN TIME PROLONGED [None]
  - RENAL FAILURE ACUTE [None]
  - RETCHING [None]
  - SERUM FERRITIN INCREASED [None]
  - SPECIFIC GRAVITY URINE INCREASED [None]
  - WEIGHT DECREASED [None]
  - WHITE BLOOD CELL COUNT INCREASED [None]
